FAERS Safety Report 5580668-7 (Version None)
Quarter: 2008Q1

REPORT INFORMATION
  Report Type: 
  Country: None (occurrence: None)
  Receive Date: 20080103
  Receipt Date: 20071222
  Transmission Date: 20080703
  Serious: Yes (Other)
  Sender: FDA-Public Use
  Company Number: US-PFIZER INC-2008000167

PATIENT
  Sex: Male

DRUGS (1)
  1. CHANTIX [Suspect]
     Indication: SMOKING CESSATION THERAPY

REACTIONS (5)
  - ABNORMAL DREAMS [None]
  - ARTHRALGIA [None]
  - DEPRESSION [None]
  - IRRITABILITY [None]
  - VISUAL DISTURBANCE [None]
